FAERS Safety Report 13376306 (Version 1)
Quarter: 2017Q1

REPORT INFORMATION
  Report Type: Spontaneous
  Country: US (occurrence: US)
  Receive Date: 20170327
  Receipt Date: 20170327
  Transmission Date: 20170429
  Serious: No
  Sender: FDA-Public Use
  Company Number: None

PATIENT
  Age: 28 Year
  Sex: Female

DRUGS (1)
  1. GAMMAGARD [Suspect]
     Active Substance: HUMAN IMMUNOGLOBULIN G
     Indication: MYASTHENIA GRAVIS
     Dosage: 30 GM QD X 5 DAYS IV
     Route: 042
     Dates: start: 20161222, end: 20161223

REACTIONS (1)
  - Headache [None]

NARRATIVE: CASE EVENT DATE: 20161222
